FAERS Safety Report 8867106 (Version 1)
Quarter: 2012Q4

REPORT INFORMATION
  Report Type: 
  Country: US (occurrence: US)
  Receive Date: 20121025
  Receipt Date: 20121025
  Transmission Date: 20130627
  Serious: No
  Sender: FDA-Public Use
  Company Number: US-AMGEN-USASP2012014894

PATIENT
  Age: 62 Year
  Sex: Female

DRUGS (13)
  1. ENBREL [Suspect]
     Indication: PRODUCT USED FOR UNKNOWN INDICATION
     Dosage: 50 mg, qwk
  2. METHOTREXATE [Concomitant]
     Dosage: 250 mg, UNK
  3. CRESTOR [Concomitant]
     Dosage: 40 mg, UNK
  4. TRIAMTERENE/HCTZ [Concomitant]
  5. FOLIC ACID [Concomitant]
  6. CALTRATE                           /00751519/ [Concomitant]
  7. ASA [Concomitant]
     Dosage: 81 mg, UNK
  8. PRILOSEC                           /00661201/ [Concomitant]
     Dosage: 40 mg, UNK
  9. OMEGA 3                            /01334101/ [Concomitant]
     Dosage: 1000 mg, UNK
  10. AZOPT [Concomitant]
  11. COMBIGAN [Concomitant]
  12. NEVANAC [Concomitant]
  13. LAMISIL AF DEFENSE [Concomitant]

REACTIONS (2)
  - Tinea infection [Unknown]
  - Injection site pain [Unknown]
